FAERS Safety Report 8606718-9 (Version None)
Quarter: 2012Q3

REPORT INFORMATION
  Report Type: 
  Country: None (occurrence: None)
  Receive Date: 20120809
  Receipt Date: 20120809
  Transmission Date: 20120928
  Serious: Yes (Life-Threatening, Hospitalization)
  Sender: FDA-Public Use
  Company Number: None

PATIENT
  Age: 55 Year
  Sex: Male

DRUGS (2)
  1. DROPERIDOL [Suspect]
     Dates: start: 20120329, end: 20120329
  2. METHADONE HYDROCHLORIDE [Suspect]
     Indication: PAIN
     Dosage: 110 MG EVERY DAY PO
     Route: 048
     Dates: start: 20100804, end: 20120329

REACTIONS (4)
  - ABDOMINAL PAIN [None]
  - VENTRICULAR TACHYCARDIA [None]
  - ELECTROCARDIOGRAM QT PROLONGED [None]
  - BLOOD POTASSIUM DECREASED [None]
